FAERS Safety Report 7576767-0 (Version None)
Quarter: 2011Q2

REPORT INFORMATION
  Report Type: 
  Country: None (occurrence: None)
  Receive Date: 20110628
  Receipt Date: 20110613
  Transmission Date: 20111010
  Serious: Yes (Life-Threatening, Other)
  Sender: FDA-Public Use
  Company Number: US-BAYER-2010-004359

PATIENT
  Age: 25 Year
  Sex: Female
  Weight: 61.224 kg

DRUGS (7)
  1. DROSPIRENONE AND ETHINYL ESTRADIOL [Suspect]
     Indication: CONTRACEPTION
     Dosage: UNK
     Route: 048
     Dates: start: 20040101, end: 20100101
  2. CELEXA [Concomitant]
     Dosage: UNK
     Dates: start: 20010101
  3. ALBUTEROL SULFATE AUTOHALER [Concomitant]
     Indication: ASTHMA
     Dosage: UNK
     Dates: start: 20050101
  4. PREDNISONE [Concomitant]
     Dosage: UNK
     Dates: start: 20010101
  5. YASMIN [Suspect]
     Indication: CONTRACEPTION
     Dosage: UNK
     Route: 048
     Dates: start: 20040101, end: 20100101
  6. ADVAIR DISKUS 100/50 [Concomitant]
     Dosage: UNK
     Dates: start: 20050101, end: 20090101
  7. XANAX [Concomitant]
     Dosage: UNK
     Dates: start: 20010101

REACTIONS (9)
  - MYOCARDIAL INFARCTION [None]
  - CHOLECYSTITIS CHRONIC [None]
  - PAIN [None]
  - GALLBLADDER DISORDER [None]
  - DEEP VEIN THROMBOSIS [None]
  - ANXIETY [None]
  - CHOLECYSTITIS ACUTE [None]
  - PULMONARY EMBOLISM [None]
  - CEREBROVASCULAR ACCIDENT [None]
